FAERS Safety Report 5269719-7 (Version None)
Quarter: 2007Q1

REPORT INFORMATION
  Report Type: 
  Country: None (occurrence: None)
  Receive Date: 20070320
  Receipt Date: 20070306
  Transmission Date: 20070707
  Serious: Yes (Hospitalization)
  Sender: FDA-Public Use
  Company Number: US-ELI_LILLY_AND_COMPANY-US200703001268

PATIENT
  Age: 66 Year
  Sex: Female

DRUGS (2)
  1. FORTEO [Suspect]
     Indication: OSTEOPOROSIS
     Dosage: UNK, UNK
     Dates: start: 20060601
  2. EVISTA [Suspect]
     Dosage: UNK, UNK
     Dates: start: 20020101, end: 20050101

REACTIONS (3)
  - FEMUR FRACTURE [None]
  - HYPOSMIA [None]
  - PAIN [None]
